FAERS Safety Report 6144560-1 (Version None)
Quarter: 2009Q2

REPORT INFORMATION
  Report Type: 
  Country: None (occurrence: None)
  Receive Date: 20090406
  Receipt Date: 20090330
  Transmission Date: 20091009
  Serious: Yes (Other)
  Sender: FDA-Public Use
  Company Number: PHHY2009DE12028

PATIENT
  Age: 47 Year
  Sex: Female

DRUGS (3)
  1. ZOLEDRONIC ACID [Suspect]
     Dosage: 4 MG EVERY 4 WEEKS
     Dates: start: 20060301, end: 20060601
  2. IBANDRONATE SODIUM [Concomitant]
     Dosage: 6 MG EVERY 4 WEEKS
     Dates: start: 20070501
  3. CHEMOTHERAPEUTICS NOS [Concomitant]
     Dosage: UNK
     Dates: start: 20060501, end: 20061201

REACTIONS (7)
  - ANAESTHESIA [None]
  - BONE DISORDER [None]
  - BREAST CANCER [None]
  - ORAL DYSAESTHESIA [None]
  - ORAL SURGERY [None]
  - OSTEONECROSIS [None]
  - TOOTH EXTRACTION [None]
